FAERS Safety Report 11809741 (Version 1)
Quarter: 2015Q4

REPORT INFORMATION
  Report Type: Spontaneous
  Country: BR (occurrence: BR)
  Receive Date: 20151208
  Receipt Date: 20151208
  Transmission Date: 20160305
  Serious: Yes (Other)
  Sender: FDA-Public Use
  Company Number: BR-ROCHE-1674131

PATIENT
  Age: 50 Year
  Sex: Female
  Weight: 69 kg

DRUGS (4)
  1. RIVOTRIL [Suspect]
     Active Substance: CLONAZEPAM
     Indication: STRESS
     Dosage: HALF TABLET AT LUNCH, 1 TABLET AT DINNER.
     Route: 065
  2. RIVOTRIL [Suspect]
     Active Substance: CLONAZEPAM
     Indication: NERVOUSNESS
  3. RIVOTRIL [Suspect]
     Active Substance: CLONAZEPAM
     Indication: AGITATION
  4. RIVOTRIL [Suspect]
     Active Substance: CLONAZEPAM
     Indication: DEPRESSION

REACTIONS (9)
  - Suicide attempt [Unknown]
  - Drug dose omission [Unknown]
  - Sleep disorder [Unknown]
  - Headache [Unknown]
  - Overdose [Unknown]
  - Amnesia [Unknown]
  - Somnolence [Unknown]
  - Acute stress disorder [Unknown]
  - Crying [Unknown]

NARRATIVE: CASE EVENT DATE: 20151103
